FAERS Safety Report 25764992 (Version 1)
Quarter: 2025Q3

REPORT INFORMATION
  Report Type: Spontaneous
  Country: AU (occurrence: AU)
  Receive Date: 20250905
  Receipt Date: 20250905
  Transmission Date: 20251021
  Serious: Yes (Other)
  Sender: TAKEDA
  Company Number: AU-TAKEDA-2025TUS076404

PATIENT
  Age: 43 Year
  Sex: Female

DRUGS (2)
  1. VYVANSE [Suspect]
     Active Substance: LISDEXAMFETAMINE DIMESYLATE
     Indication: Attention deficit hyperactivity disorder
  2. VYVANSE [Suspect]
     Active Substance: LISDEXAMFETAMINE DIMESYLATE

REACTIONS (9)
  - Anxiety [Not Recovered/Not Resolved]
  - Confusional state [Unknown]
  - Depression [Not Recovered/Not Resolved]
  - Disturbance in attention [Unknown]
  - Executive dysfunction [Unknown]
  - Fatigue [Unknown]
  - Impaired work ability [Unknown]
  - Loss of personal independence in daily activities [Unknown]
  - Therapeutic product effect decreased [Not Recovered/Not Resolved]

NARRATIVE: CASE EVENT DATE: 20250601
